FAERS Safety Report 5891874-6 (Version None)
Quarter: 2008Q3

REPORT INFORMATION
  Report Type: 
  Country: None (occurrence: None)
  Receive Date: 20080908
  Receipt Date: 20080514
  Transmission Date: 20090109
  Serious: No
  Sender: FDA-Public Use
  Company Number: 002#1#2008-00460

PATIENT
  Age: 84 Year
  Sex: Male

DRUGS (4)
  1. NEUPRO [Suspect]
     Indication: PARKINSON'S DISEASE
     Dosage: 4MG/24H, 1 IN 1 D, TRANSDERMAL; 6MG/24H, 1 IN 1 D, TRANSDERMAL; 4MG/24H, 1 IN 1D, TRANSDERMAL
     Route: 062
     Dates: start: 20070901
  2. NEUPRO [Suspect]
     Indication: PARKINSON'S DISEASE
     Dosage: 4MG/24H, 1 IN 1 D, TRANSDERMAL; 6MG/24H, 1 IN 1 D, TRANSDERMAL; 4MG/24H, 1 IN 1D, TRANSDERMAL
     Route: 062
     Dates: start: 20080101
  3. REQUIP [Concomitant]
  4. SINEMET [Concomitant]

REACTIONS (1)
  - THERAPEUTIC RESPONSE DECREASED [None]
